FAERS Safety Report 6043646-X (Version None)
Quarter: 2009Q1

REPORT INFORMATION
  Report Type: 
  Country: None (occurrence: None)
  Receive Date: 20090115
  Receipt Date: 20090105
  Transmission Date: 20090719
  Serious: Yes (Hospitalization)
  Sender: FDA-Public Use
  Company Number: 606597

PATIENT
  Age: 72 Year
  Sex: Male

DRUGS (10)
  1. TORSEMIDE [Suspect]
     Indication: DRUG USE FOR UNKNOWN INDICATION
     Dosage: 10 MG DOSE FORM 1 PER 1 DAY ORAL
     Route: 048
     Dates: start: 20081003
  2. METOLAZONE [Suspect]
     Indication: DRUG USE FOR UNKNOWN INDICATION
     Dosage: 5 MG 1 PER 1 DAY ORAL
     Route: 048
     Dates: start: 20081003
  3. SINTROM [Concomitant]
  4. BISOPROLOL FUMARATE [Concomitant]
  5. CORDARONE [Concomitant]
  6. ENATEC (ENALAPRIL) [Concomitant]
  7. ALDACTONE [Concomitant]
  8. SIMVASTATIN [Concomitant]
  9. FOSAMAX [Concomitant]
  10. CACIT D3  (CALCIUMCARBONATE/CHOLECALCIFEROL) [Concomitant]

REACTIONS (3)
  - HYPOKALAEMIA [None]
  - HYPONATRAEMIA [None]
  - VENTRICULAR TACHYCARDIA [None]
